FAERS Safety Report 21298953 (Version 1)
Quarter: 2022Q3

REPORT INFORMATION
  Report Type: Spontaneous
  Country: US (occurrence: US)
  Receive Date: 20220906
  Receipt Date: 20220906
  Transmission Date: 20221026
  Serious: No
  Sender: FDA-Public Use
  Company Number: US-CMP PHARMA-2021CMP00021

PATIENT
  Sex: Male
  Weight: 72.562 kg

DRUGS (4)
  1. CAROSPIR [Suspect]
     Active Substance: SPIRONOLACTONE
     Indication: Hypertension
     Dosage: 0.1 ML, 3X/DAY
     Dates: start: 2021, end: 2021
  2. CAROSPIR [Suspect]
     Active Substance: SPIRONOLACTONE
     Dosage: 0.025 ML, 3X/DAY
     Dates: start: 2021
  3. AMLODIPINE [Suspect]
     Active Substance: AMLODIPINE BESYLATE
     Indication: Hypertension
     Dosage: .0625 MG (A CHIP; LEARNED TO EYEBALL)
  4. UNSPECIFIED INGREDIENT [Suspect]
     Active Substance: UNSPECIFIED INGREDIENT
     Dosage: UNK

REACTIONS (11)
  - Drug intolerance [Recovering/Resolving]
  - Abdominal pain upper [Recovering/Resolving]
  - Abdominal discomfort [Recovering/Resolving]
  - Paraesthesia [Recovering/Resolving]
  - Gastrooesophageal reflux disease [Recovering/Resolving]
  - Fatigue [Unknown]
  - Malaise [Recovering/Resolving]
  - Paradoxical pressor response [Unknown]
  - Intentional underdose [Not Recovered/Not Resolved]
  - Product administration error [Unknown]
  - Renin decreased [Unknown]

NARRATIVE: CASE EVENT DATE: 20210101
